FAERS Safety Report 10097209 (Version 2)
Quarter: 2014Q2

REPORT INFORMATION
  Report Type: Report from Study
  Country: BR (occurrence: BR)
  Receive Date: 20140422
  Receipt Date: 20140626
  Transmission Date: 20141212
  Serious: Yes (Other)
  Sender: FDA-Public Use
  Company Number: PHHY2014BR048406

PATIENT
  Sex: Female
  Weight: 56 kg

DRUGS (11)
  1. METFORMIN HYDROCHLORIDE SANDOZ [Suspect]
     Indication: BLOOD GLUCOSE INCREASED
     Dosage: 1 DF, QD
     Route: 048
     Dates: start: 201201, end: 201312
  2. ATORVASTATIN [Concomitant]
     Indication: HYPERTENSION
  3. LOSARTAN [Concomitant]
     Indication: HYPERTENSION
  4. PANTOPRAZOL [Concomitant]
     Indication: GASTRIC DISORDER
  5. DOMPERIDONE [Concomitant]
     Indication: GASTRIC DISORDER
  6. INDAPEN//INDAPAMIDE [Concomitant]
     Indication: CARDIAC DISORDER
  7. PRESSAT [Concomitant]
  8. PURAN T4 [Concomitant]
     Indication: HYPOTHYROIDISM
  9. METAMUSIL [Concomitant]
  10. VALIUM [Concomitant]
     Indication: SLEEP DISORDER
  11. DOXYCYCLINE [Concomitant]

REACTIONS (8)
  - Kidney infection [Not Recovered/Not Resolved]
  - Visual impairment [Not Recovered/Not Resolved]
  - Gait disturbance [Not Recovered/Not Resolved]
  - Gastric disorder [Not Recovered/Not Resolved]
  - Renal impairment [Not Recovered/Not Resolved]
  - Fatigue [Not Recovered/Not Resolved]
  - Malaise [Not Recovered/Not Resolved]
  - Blood glucose increased [Not Recovered/Not Resolved]
